FAERS Safety Report 17666594 (Version 6)
Quarter: 2020Q2

REPORT INFORMATION
  Report Type: Report from Study
  Country: CA (occurrence: CA)
  Receive Date: 20200414
  Receipt Date: 20200610
  Transmission Date: 20200713
  Serious: Yes (Hospitalization, Other)
  Sender: FDA-Public Use
  Company Number: CA-JNJFOC-20191147275

PATIENT
  Age: 18 Year
  Sex: Male
  Weight: 77.18 kg

DRUGS (2)
  1. STELARA [Suspect]
     Active Substance: USTEKINUMAB
     Indication: CROHN^S DISEASE
     Dosage: LAST ADMINISTRATION ON 07-NOV-2019
     Route: 058
     Dates: start: 20170404
  2. STELARA [Suspect]
     Active Substance: USTEKINUMAB
     Route: 058

REACTIONS (7)
  - Pyoderma gangrenosum [Not Recovered/Not Resolved]
  - Pallor [Unknown]
  - Product use issue [Unknown]
  - Off label use [Unknown]
  - Abscess [Recovering/Resolving]
  - Intestinal perforation [Unknown]
  - Intestinal obstruction [Unknown]

NARRATIVE: CASE EVENT DATE: 20200113
